FAERS Safety Report 6607904-X (Version None)
Quarter: 2010Q1

REPORT INFORMATION
  Report Type: 
  Country: None (occurrence: None)
  Receive Date: 20100301
  Receipt Date: 20100222
  Transmission Date: 20100710
  Serious: Yes (Death)
  Sender: FDA-Public Use
  Company Number: CHPA2010US03724

PATIENT
  Age: 37 Year
  Sex: Female

DRUGS (7)
  1. FERROUS SULFATE (NCH) [Suspect]
  2. BUPROPION HCL [Suspect]
  3. BUSPIRONE HCL [Suspect]
  4. ETHANOL [Suspect]
  5. DULOXETINE HYDROCHLORIDE [Suspect]
  6. OMEPRAZOLE [Suspect]
  7. ^DRUG, UNKNOWN^ [Suspect]

REACTIONS (1)
  - COMPLETED SUICIDE [None]
